FAERS Safety Report 16309506 (Version 1)
Quarter: 2019Q2

REPORT INFORMATION
  Report Type: Report from Study
  Country: CA (occurrence: CA)
  Receive Date: 20190514
  Receipt Date: 20190514
  Transmission Date: 20190711
  Serious: Yes (Other)
  Sender: FDA-Public Use
  Company Number: CA-NALPROPION PHARMACEUTICALS INC.-2019-007231

PATIENT

DRUGS (6)
  1. CONTRAVE [Suspect]
     Active Substance: BUPROPION HYDROCHLORIDE\NALTREXONE HYDROCHLORIDE
     Dosage: IN MORNING (1 DOSAGE FORM, 1 IN 1 D)
     Route: 048
     Dates: start: 20190416, end: 20190421
  2. VITAMIN B-COMPLEX [Concomitant]
     Active Substance: DEXPANTHENOL\NIACINAMIDE\PYRIDOXINE HYDROCHLORIDE\RIBOFLAVIN 5^-PHOSPHATE SODIUM\THIAMINE HYDROCHLORIDE
     Indication: VITAMIN SUPPLEMENTATION
     Dosage: 1 DOSAGE FORM (1 DOSAGE FORM, 1 IN 1 D)
     Route: 048
  3. CONTRAVE [Suspect]
     Active Substance: BUPROPION HYDROCHLORIDE\NALTREXONE HYDROCHLORIDE
     Indication: WEIGHT CONTROL
     Dosage: IN EVENING (1 DOSAGE FORMS, 1 IN 1 D)
     Route: 048
     Dates: start: 20190409, end: 20190415
  4. VIT D [Concomitant]
     Active Substance: VITAMIN D NOS
     Indication: VITAMIN SUPPLEMENTATION
     Dosage: 1 DOSAGE FORMS (1 DOSAGE FORM, 1 IN 1 D)
     Route: 048
  5. FOLIC ACID. [Concomitant]
     Active Substance: FOLIC ACID
     Indication: VITAMIN SUPPLEMENTATION
     Dosage: 1 DOSAGE FORMS (1 DOSAGE FORM, 1 IN 1 D)
     Route: 048
  6. CALCIUM [Concomitant]
     Active Substance: CALCIUM
     Indication: VITAMIN SUPPLEMENTATION
     Dosage: 2 GM, 1 IN 1 D
     Route: 048

REACTIONS (3)
  - Product prescribing error [Unknown]
  - Angina pectoris [Unknown]
  - Insomnia [Unknown]

NARRATIVE: CASE EVENT DATE: 201904
